FAERS Safety Report 5782076-2 (Version None)
Quarter: 2008Q2

REPORT INFORMATION
  Report Type: 
  Country: None (occurrence: None)
  Receive Date: 20080623
  Receipt Date: 20080612
  Transmission Date: 20081010
  Serious: Yes (Hospitalization)
  Sender: FDA-Public Use
  Company Number: FR-JNJFOC-20080603012

PATIENT
  Age: 8 Year
  Sex: Female

DRUGS (1)
  1. RISPERDAL [Suspect]
     Indication: AUTISM
     Route: 048

REACTIONS (3)
  - CHOREOATHETOSIS [None]
  - PARKINSONISM [None]
  - TARDIVE DYSKINESIA [None]
